FAERS Safety Report 13855271 (Version 1)
Quarter: 2017Q3

REPORT INFORMATION
  Report Type: Spontaneous
  Country: US (occurrence: US)
  Receive Date: 20170810
  Receipt Date: 20170810
  Transmission Date: 20171127
  Serious: No
  Sender: FDA-Public Use
  Company Number: US-TEIKOKU PHARMA USA-TPU2017-00367

PATIENT
  Sex: Female
  Weight: 40.86 kg

DRUGS (4)
  1. ARNICA GEL [Concomitant]
     Indication: MYALGIA
  2. LIDOCAINE PATCH [Suspect]
     Active Substance: LIDOCAINE
     Indication: FIBROMYALGIA
     Dosage: UP TO 3. SOMETIMES I CUT THEM. APPLIED ^MOSTLY LOW BACK AND JUST BELOW MY HIP BONE FOR MY RIB PAIN,
  3. ARNICA TABLET [Concomitant]
     Indication: MYALGIA
     Dosage: PLACED UNDER THE TONGUE
     Dates: start: 1984
  4. ARNICA GEL [Concomitant]
     Indication: CONTUSION
     Dosage: APPLIED TO BRUISES
     Dates: start: 1984

REACTIONS (3)
  - Weight decreased [Unknown]
  - Multiple use of single-use product [Unknown]
  - Scoliosis [Unknown]

NARRATIVE: CASE EVENT DATE: 2013
